FAERS Safety Report 14137438 (Version 1)
Quarter: 2017Q4

REPORT INFORMATION
  Report Type: Spontaneous
  Country: US (occurrence: US)
  Receive Date: 20171027
  Receipt Date: 20171027
  Transmission Date: 20180321
  Serious: Yes (Hospitalization)
  Sender: FDA-Public Use
  Company Number: US-VIFOR (INTERNATIONAL) INC.-VIT-2017-10673

PATIENT
  Age: 48 Year
  Sex: Female

DRUGS (30)
  1. MOMETASONE FUROATE. [Concomitant]
     Active Substance: MOMETASONE FUROATE
  2. CLOTRIMAZOLE. [Concomitant]
     Active Substance: CLOTRIMAZOLE
  3. PARACETAMOL [Concomitant]
     Active Substance: ACETAMINOPHEN
  4. VELTASSA [Suspect]
     Active Substance: PATIROMER
     Indication: HYPERKALAEMIA
     Route: 048
     Dates: start: 20160415
  5. LACTULOSE. [Concomitant]
     Active Substance: LACTULOSE
  6. TORASEMIDE [Concomitant]
     Active Substance: TORSEMIDE
  7. NORVASC [Concomitant]
     Active Substance: AMLODIPINE BESYLATE
  8. VITAMINS NOS [Concomitant]
     Active Substance: VITAMINS
  9. METOPROLOL TARTRATE. [Concomitant]
     Active Substance: METOPROLOL TARTRATE
  10. DOXAZOSIN MESILATE [Concomitant]
     Active Substance: DOXAZOSIN MESYLATE
  11. OMEPRAZOLE. [Concomitant]
     Active Substance: OMEPRAZOLE
  12. LORATADINE. [Concomitant]
     Active Substance: LORATADINE
  13. LASIX [Concomitant]
     Active Substance: FUROSEMIDE
  14. DIAMOX SEQUELS [Concomitant]
     Active Substance: ACETAZOLAMIDE
  15. FISH OIL [Concomitant]
     Active Substance: FISH OIL
  16. LANTUS [Concomitant]
     Active Substance: INSULIN GLARGINE
  17. PARACETAMOL~~HYDROCODONE [Concomitant]
  18. COLACE [Concomitant]
     Active Substance: DOCUSATE SODIUM
  19. ISOSORBIDE MONONITRATE. [Concomitant]
     Active Substance: ISOSORBIDE MONONITRATE
  20. GABAPENTIN. [Concomitant]
     Active Substance: GABAPENTIN
  21. AMITRIPTYLINE HYDROCHLORIDE. [Concomitant]
     Active Substance: AMITRIPTYLINE HYDROCHLORIDE
  22. SALBUTAMOL SULFATE [Concomitant]
     Active Substance: ALBUTEROL SULFATE
  23. PREDNISONE. [Concomitant]
     Active Substance: PREDNISONE
  24. ONDANSETRON HYDROCHLORIDE. [Concomitant]
     Active Substance: ONDANSETRON HYDROCHLORIDE
  25. LEVOTHYROXINE SODIUM. [Concomitant]
     Active Substance: LEVOTHYROXINE SODIUM
  26. HYDRALAZINE HYDROCHLORIDE. [Concomitant]
     Active Substance: HYDRALAZINE HYDROCHLORIDE
  27. NYSTATIN. [Concomitant]
     Active Substance: NYSTATIN
  28. NOVOLOG [Concomitant]
     Active Substance: INSULIN ASPART
  29. HYDROCHLOROTHIAZIDE. [Concomitant]
     Active Substance: HYDROCHLOROTHIAZIDE
  30. DULCOLAX NOS [Concomitant]
     Active Substance: BISACODYL OR DOCUSATE SODIUM

REACTIONS (1)
  - Injury [Unknown]

NARRATIVE: CASE EVENT DATE: 20171003
